FAERS Safety Report 4412246-7 (Version None)
Quarter: 2004Q2

REPORT INFORMATION
  Report Type: 
  Country: None (occurrence: None)
  Receive Date: 20040630
  Receipt Date: 20040316
  Transmission Date: 20050107
  Serious: No
  Sender: FDA-Public Use
  Company Number: 04P-163-0253891-00

PATIENT
  Age: 77 Year
  Sex: Male
  Weight: 53.5244 kg

DRUGS (10)
  1. HUMIRA [Suspect]
     Indication: RHEUMATOID ARTHRITIS
     Dosage: 40 MG, 1 IN 2 WK, INJECTION
     Dates: start: 20040212
  2. RISEDRONATE SODIUM [Concomitant]
  3. CALCIUM WITH VITAMIN D [Concomitant]
  4. GABAPENTIN [Concomitant]
  5. PROPACET 100 [Concomitant]
  6. AMLODIPINE BESYLATE [Concomitant]
  7. WARFARIN SODIUM [Concomitant]
  8. PANTOPRAZOLE [Concomitant]
  9. LEVOTHYROXINE SODIUM [Concomitant]
  10. TAMSULOSIN HYDROCHLORIDE [Concomitant]

REACTIONS (3)
  - CONDITION AGGRAVATED [None]
  - NASAL CONGESTION [None]
  - SNEEZING [None]
